FAERS Safety Report 14788929 (Version 2)
Quarter: 2018Q2

REPORT INFORMATION
  Report Type: Report from Study
  Country: JP (occurrence: JP)
  Receive Date: 20180423
  Receipt Date: 20180515
  Transmission Date: 20180711
  Serious: Yes (Hospitalization)
  Sender: FDA-Public Use
  Company Number: JP-AMGEN-JPNNI2018054539

PATIENT
  Age: 70 Year
  Sex: Female

DRUGS (5)
  1. MAXACALCITOL [Concomitant]
     Active Substance: MAXACALCITOL
  2. ETELCALCETIDE [Suspect]
     Active Substance: ETELCALCETIDE
     Indication: HYPERPARATHYROIDISM SECONDARY
     Dosage: 5 MG, 3 TIMES/WK
     Route: 042
     Dates: start: 20170501
  3. KIKLIN [Concomitant]
     Active Substance: BIXALOMER
  4. RIONA [Concomitant]
     Active Substance: FERRIC CITRATE ANHYDROUS
     Dosage: 750 MG, UNK
     Dates: start: 20170826
  5. RIONA [Concomitant]
     Active Substance: FERRIC CITRATE ANHYDROUS
     Dosage: 1500 MG, UNK
     Dates: end: 20170825

REACTIONS (3)
  - Shunt malfunction [Recovered/Resolved]
  - Large intestine polyp [Recovered/Resolved]
  - Back pain [Recovered/Resolved]

NARRATIVE: CASE EVENT DATE: 20170816
